FAERS Safety Report 16483399 (Version 2)
Quarter: 2019Q3

REPORT INFORMATION
  Report Type: Spontaneous
  Country: US (occurrence: US)
  Receive Date: 20190627
  Receipt Date: 20190730
  Transmission Date: 20191004
  Serious: No
  Sender: FDA-Public Use
  Company Number: US-CELGENEUS-USA-20190607432

PATIENT
  Age: 63 Year
  Sex: Female

DRUGS (1)
  1. REVLIMID [Suspect]
     Active Substance: LENALIDOMIDE
     Indication: 5Q MINUS SYNDROME
     Dosage: 10 MILLIGRAM
     Route: 048
     Dates: start: 20190425

REACTIONS (5)
  - Anorectal discomfort [Unknown]
  - Papule [Unknown]
  - Bone swelling [Unknown]
  - Vulvovaginal burning sensation [Unknown]
  - Bone pain [Unknown]

NARRATIVE: CASE EVENT DATE: 20190630
